FAERS Safety Report 5682928-8 (Version None)
Quarter: 2008Q1

REPORT INFORMATION
  Report Type: 
  Country: None (occurrence: None)
  Receive Date: 20080327
  Receipt Date: 20080325
  Transmission Date: 20080703
  Serious: Yes (Death)
  Sender: FDA-Public Use
  Company Number: HR-JNJFOC-20080306080

PATIENT
  Sex: Male
  Weight: 112 kg

DRUGS (5)
  1. PALIPERIDONE [Suspect]
  2. PALIPERIDONE [Suspect]
     Indication: SCHIZOPHRENIA
  3. FLUVOXAMINE MALEATE [Concomitant]
     Route: 048
  4. DIAZEPAM [Concomitant]
     Indication: SCHIZOPHRENIA
  5. FLUZEPAM [Concomitant]

REACTIONS (1)
  - DEATH [None]
